FAERS Safety Report 7953089-7 (Version None)
Quarter: 2011Q4

REPORT INFORMATION
  Report Type: 
  Country: None (occurrence: None)
  Receive Date: 20111201
  Receipt Date: 20111122
  Transmission Date: 20120403
  Serious: Yes (Hospitalization, Other)
  Sender: FDA-Public Use
  Company Number: US-BAXTER-2011BH036554

PATIENT
  Sex: Female

DRUGS (2)
  1. DIANEAL [Suspect]
     Indication: PERITONEAL DIALYSIS
     Route: 033
  2. EXJADE [Suspect]
     Indication: IRON OVERLOAD
     Route: 065

REACTIONS (5)
  - ANAEMIA [None]
  - DIARRHOEA [None]
  - HYPOTENSION [None]
  - DEHYDRATION [None]
  - PERITONEAL DIALYSIS COMPLICATION [None]
